FAERS Safety Report 7845722-5 (Version None)
Quarter: 2011Q4

REPORT INFORMATION
  Report Type: 
  Country: None (occurrence: None)
  Receive Date: 20111025
  Receipt Date: 20111014
  Transmission Date: 20120403
  Serious: Yes (Other)
  Sender: FDA-Public Use
  Company Number: FR-ROCHE-1006439

PATIENT
  Sex: Male

DRUGS (9)
  1. LUCENTIS [Suspect]
     Dosage: SECOND INJECTION
     Dates: start: 20100721
  2. LUCENTIS [Suspect]
     Indication: AGE-RELATED MACULAR DEGENERATION
     Dosage: FIRST INJECTION
     Route: 050
     Dates: start: 20100623
  3. LUCENTIS [Suspect]
     Dosage: FIFTH INJECTION
     Dates: start: 20110307
  4. LUCENTIS [Suspect]
     Dosage: SIXTH INJECTION
     Dates: start: 20110720
  5. LUCENTIS [Suspect]
     Dosage: THIRD INJECTION
     Dates: start: 20100906
  6. LUCENTIS [Suspect]
     Dosage: FOURTH INJECTION
     Dates: start: 20101213
  7. BETADINE [Concomitant]
  8. VITABACT [Concomitant]
  9. BENOXINATE HYDROCHLORIDE [Concomitant]

REACTIONS (5)
  - ULCERATIVE KERATITIS [None]
  - ATOPY [None]
  - EYELID OEDEMA [None]
  - EYE IRRITATION [None]
  - RETINAL DETACHMENT [None]
